FAERS Safety Report 13259492 (Version 2)
Quarter: 2017Q1

REPORT INFORMATION
  Report Type: Report from Study
  Country: NL (occurrence: NL)
  Receive Date: 20170222
  Receipt Date: 20170317
  Transmission Date: 20170428
  Serious: Yes (Hospitalization)
  Sender: FDA-Public Use
  Company Number: NL-BIOGEN-2017BI00359657

PATIENT
  Sex: Male

DRUGS (1)
  1. AVONEX [Suspect]
     Active Substance: INTERFERON BETA-1A
     Indication: MULTIPLE SCLEROSIS
     Route: 030
     Dates: start: 20090729

REACTIONS (3)
  - Meningioma [Recovered/Resolved]
  - Epilepsy [Recovered/Resolved]
  - Stress [Unknown]

NARRATIVE: CASE EVENT DATE: 20170213
